FAERS Safety Report 4316443-0 (Version None)
Quarter: 2004Q1

REPORT INFORMATION
  Report Type: 
  Country: None (occurrence: None)
  Receive Date: 20040311
  Receipt Date: 20040225
  Transmission Date: 20041129
  Serious: Yes (Other)
  Sender: FDA-Public Use
  Company Number: 2004-UK-00195UK

PATIENT
  Age: 30 Year
  Sex: Female

DRUGS (3)
  1. NEVIRAPINE (00015/0215/A) (NEVIRAPINE) (NR) [Suspect]
     Indication: ACUTE HIV INFECTION
     Dosage: 400 MG PO
     Route: 048
     Dates: start: 20031124
  2. COMBIVIR [Suspect]
     Indication: HIV INFECTION
     Dosage: 2 ANZ PO
     Route: 048
     Dates: start: 20031124
  3. COMBIVIR [Suspect]
     Indication: PREGNANCY
     Dosage: 2 ANZ PO
     Route: 048
     Dates: start: 20031124

REACTIONS (4)
  - COMPLICATIONS OF MATERNAL EXPOSURE TO THERAPEUTIC DRUGS [None]
  - HEPATOTOXICITY [None]
  - MATERNAL DRUGS AFFECTING FOETUS [None]
  - STILLBIRTH [None]
